FAERS Safety Report 7197717-5 (Version None)
Quarter: 2010Q4

REPORT INFORMATION
  Report Type: 
  Country: None (occurrence: None)
  Receive Date: 20101227
  Receipt Date: 20101215
  Transmission Date: 20110411
  Serious: Yes (Hospitalization)
  Sender: FDA-Public Use
  Company Number: US-SANOFI-AVENTIS-2010SA075937

PATIENT
  Age: 75 Year
  Sex: Male
  Weight: 63.1 kg

DRUGS (15)
  1. OXALIPLATIN [Suspect]
     Route: 041
     Dates: start: 20100618, end: 20100618
  2. OXALIPLATIN [Suspect]
     Route: 041
     Dates: start: 20101112, end: 20101112
  3. LEUCOVORIN CALCIUM [Suspect]
     Route: 041
     Dates: start: 20100618, end: 20100618
  4. LEUCOVORIN CALCIUM [Suspect]
     Route: 041
     Dates: start: 20101203, end: 20101203
  5. FLUOROURACIL [Suspect]
     Route: 040
     Dates: start: 20100618, end: 20100618
  6. FLUOROURACIL [Suspect]
     Route: 041
     Dates: start: 20100618, end: 20100619
  7. FLUOROURACIL [Suspect]
     Route: 040
     Dates: start: 20101203, end: 20101203
  8. FLUOROURACIL [Suspect]
     Route: 041
     Dates: start: 20101203, end: 20101204
  9. PANCRELIPASE [Concomitant]
  10. ENALAPRIL MALEATE [Concomitant]
  11. NIFEREX [Concomitant]
  12. OXYBUTYNIN CHLORIDE [Concomitant]
  13. SIMVASTATIN [Concomitant]
  14. TRAZODONE [Concomitant]
  15. LOPERAMIDE HYDROCHLORIDE [Concomitant]

REACTIONS (2)
  - CHONDROCALCINOSIS PYROPHOSPHATE [None]
  - INFECTION [None]
